FAERS Safety Report 4344707-3 (Version None)
Quarter: 2004Q2

REPORT INFORMATION
  Report Type: 
  Country: None (occurrence: None)
  Receive Date: 20040420
  Receipt Date: 20040408
  Transmission Date: 20050107
  Serious: Yes (Other)
  Sender: FDA-Public Use
  Company Number: 2004209017DE

PATIENT
  Age: 34 Year
  Sex: Female
  Weight: 55 kg

DRUGS (1)
  1. ZYVOXID 600MG(LINEZOLID) TABLET [Suspect]
     Indication: OSTEOMYELITIS
     Dosage: 1200 MG, DAILY ,ORAL
     Route: 048
     Dates: start: 20030815, end: 20040102

REACTIONS (3)
  - ALLODYNIA [None]
  - NEUROPATHY PERIPHERAL [None]
  - RETINAL HAEMORRHAGE [None]
